FAERS Safety Report 25540372 (Version 4)
Quarter: 2025Q3

REPORT INFORMATION
  Report Type: Report from Study
  Country: US (occurrence: US)
  Receive Date: 20250710
  Receipt Date: 20250829
  Transmission Date: 20251021
  Serious: Yes (Hospitalization)
  Sender: EMD SERONO INC
  Company Number: US-Merck Healthcare KGaA-2025034765

PATIENT
  Sex: Female

DRUGS (2)
  1. MAVENCLAD [Suspect]
     Active Substance: CLADRIBINE
     Indication: Multiple sclerosis
     Dosage: YEAR ONE MONTH ONE THERAPY
     Dates: start: 20240523
  2. MAVENCLAD [Suspect]
     Active Substance: CLADRIBINE

REACTIONS (6)
  - Cellulitis [Recovering/Resolving]
  - Abscess limb [Recovering/Resolving]
  - Staphylococcal infection [Recovering/Resolving]
  - Impaired healing [Unknown]
  - Dysgraphia [Unknown]
  - Post procedural complication [Not Recovered/Not Resolved]
